FAERS Safety Report 9472142 (Version 2)
Quarter: 2013Q4

REPORT INFORMATION
  Report Type: Spontaneous
  Country: CA (occurrence: CA)
  Receive Date: 20130823
  Receipt Date: 20131004
  Transmission Date: 20140711
  Serious: Yes (Other)
  Sender: FDA-Public Use
  Company Number: CA-AMGEN-CANSP2013058505

PATIENT
  Age: 49 Year
  Sex: Female
  Weight: 63.49 kg

DRUGS (10)
  1. ENBREL [Suspect]
     Indication: RHEUMATOID ARTHRITIS
     Dosage: 50 MG, QWK
     Route: 058
     Dates: start: 20130525
  2. ENBREL [Suspect]
     Indication: ANKYLOSING SPONDYLITIS
  3. VOLTAREN                           /00372301/ [Concomitant]
     Indication: ANKYLOSING SPONDYLITIS
     Dosage: UNK UNK, AS NECESSARY
     Dates: start: 2012
  4. LYRICA [Concomitant]
     Indication: DEPRESSION
     Dosage: 75 MG, TID
     Route: 048
     Dates: start: 2011
  5. FOLIC ACID [Concomitant]
     Dosage: 5 MG, 2 TIMES/WK
     Route: 048
  6. METHOTREXATE [Concomitant]
     Indication: ANKYLOSING SPONDYLITIS
     Dosage: 25 MG, QS
     Route: 058
  7. CELEBREX [Concomitant]
     Indication: ANKYLOSING SPONDYLITIS
     Dosage: 200 MG, BID
     Route: 048
     Dates: start: 199905
  8. PERCOCET                           /00867901/ [Concomitant]
     Dosage: 5-325, MG BID
     Route: 048
     Dates: start: 201304
  9. TYLENOL                            /00020001/ [Concomitant]
     Dosage: UNK UNK, BID, PRN
     Dates: start: 201304
  10. DOCUSATE [Concomitant]
     Dosage: UNK, AS NECESSARY
     Dates: start: 201304

REACTIONS (2)
  - Invasive ductal breast carcinoma [Not Recovered/Not Resolved]
  - Intraductal proliferative breast lesion [Not Recovered/Not Resolved]
